FAERS Safety Report 4631546-9 (Version None)
Quarter: 2005Q2

REPORT INFORMATION
  Report Type: 
  Country: None (occurrence: None)
  Receive Date: 20050407
  Receipt Date: 20050331
  Transmission Date: 20051028
  Serious: Yes (Death, Life-Threatening, Hospitalization, Other)
  Sender: FDA-Public Use
  Company Number: 2005043166

PATIENT
  Age: 75 Year
  Sex: Male
  Weight: 76 kg

DRUGS (1)
  1. ATORVASTATIN CALCIUM [Suspect]
     Indication: HYPERLIPIDAEMIA
     Dosage: 20 MG ( 1 IN 1 D), ORAL
     Route: 048
     Dates: start: 20010101

REACTIONS (13)
  - ANAEMIA [None]
  - APATHY [None]
  - ASTHENIA [None]
  - BLOOD CREATININE INCREASED [None]
  - CLEAR CELL CARCINOMA OF THE KIDNEY [None]
  - DIALYSIS [None]
  - HYPERKALAEMIA [None]
  - MALIGNANT NEOPLASM PROGRESSION [None]
  - MYOGLOBIN BLOOD INCREASED [None]
  - NAUSEA [None]
  - PYELONEPHRITIS CHRONIC [None]
  - RENAL TUBULAR NECROSIS [None]
  - VOMITING [None]
